FAERS Safety Report 5127134-0 (Version None)
Quarter: 2006Q4

REPORT INFORMATION
  Report Type: 
  Country: None (occurrence: None)
  Receive Date: 20061013
  Receipt Date: 20061005
  Transmission Date: 20070319
  Serious: Yes (Other)
  Sender: FDA-Public Use
  Company Number: 2006SE05467

PATIENT
  Age: 23 Year
  Sex: Male

DRUGS (2)
  1. SEROQUEL [Suspect]
     Indication: SCHIZOPHRENIA
     Route: 048
     Dates: start: 20020606
  2. SEROQUEL [Suspect]
     Dosage: 200 MG (DURING THE DAY)+600 MG (AT NIGHT)
     Route: 048
     Dates: end: 20060823

REACTIONS (1)
  - OBSESSIVE-COMPULSIVE DISORDER [None]
